FAERS Safety Report 23208417 (Version 1)
Quarter: 2023Q4

REPORT INFORMATION
  Report Type: Spontaneous
  Country: JP (occurrence: JP)
  Receive Date: 20231121
  Receipt Date: 20231121
  Transmission Date: 20240109
  Serious: Yes (Other)
  Sender: FDA-Public Use
  Company Number: JP-ROCHE-3455893

PATIENT
  Age: 70 Year
  Sex: Female

DRUGS (2)
  1. CAPECITABINE [Suspect]
     Active Substance: CAPECITABINE
     Indication: Anal cancer
     Route: 048
     Dates: start: 201910
  2. AVASTIN [Suspect]
     Active Substance: BEVACIZUMAB
     Indication: Anal cancer
     Dates: start: 201910

REACTIONS (2)
  - Metastases to skin [Unknown]
  - Off label use [Unknown]

NARRATIVE: CASE EVENT DATE: 20191001
